FAERS Safety Report 6240698-9 (Version None)
Quarter: 2009Q2

REPORT INFORMATION
  Report Type: 
  Country: None (occurrence: None)
  Receive Date: 20090623
  Receipt Date: 20090202
  Transmission Date: 20091009
  Serious: No
  Sender: FDA-Public Use
  Company Number: US-ASTRAZENECA-2009UW02963

PATIENT
  Age: 68 Year
  Sex: Female
  Weight: 80.7 kg

DRUGS (1)
  1. PULMICORT RESPULES [Suspect]
     Indication: ASTHMA
     Route: 055
     Dates: start: 20090122, end: 20090129

REACTIONS (1)
  - BLISTER [None]
